FAERS Safety Report 24637991 (Version 2)
Quarter: 2024Q4

REPORT INFORMATION
  Report Type: Spontaneous
  Country: US (occurrence: US)
  Receive Date: 20241119
  Receipt Date: 20241211
  Transmission Date: 20250114
  Serious: No
  Sender: PFIZER
  Company Number: US-PFIZER INC-PV202400149273

PATIENT
  Age: 76 Year
  Sex: Female

DRUGS (2)
  1. TUKYSA [Suspect]
     Active Substance: TUCATINIB
     Dosage: 300 MG (2 TABLETS OF 150 MG), 2X/DAY
     Route: 048
  2. CAPECITABINE [Suspect]
     Active Substance: CAPECITABINE
     Dosage: UNK

REACTIONS (3)
  - Illness [Unknown]
  - Diarrhoea [Unknown]
  - Nausea [Unknown]
